FAERS Safety Report 7752530-2 (Version None)
Quarter: 2011Q3

REPORT INFORMATION
  Report Type: 
  Country: None (occurrence: None)
  Receive Date: 20110915
  Receipt Date: 20110906
  Transmission Date: 20111222
  Serious: Yes (Hospitalization, Other)
  Sender: FDA-Public Use
  Company Number: JP-MILLENNIUM PHARMACEUTICALS, INC.-2011-03969

PATIENT

DRUGS (12)
  1. LOXOPROFEN [Concomitant]
     Indication: MUSCULOSKELETAL PAIN
     Dosage: 60 MG, PRN
     Route: 048
     Dates: start: 20110727
  2. DEXAMETHASONE [Concomitant]
     Indication: MULTIPLE MYELOMA
     Dosage: 20 MG, UNK
     Route: 048
     Dates: start: 20110712
  3. VELCADE [Suspect]
     Indication: MULTIPLE MYELOMA
     Dosage: 1.3 MG/M2, 2/WEEK
     Route: 042
     Dates: start: 20110712
  4. PANOBINOSTAT [Suspect]
     Indication: MULTIPLE MYELOMA
     Dosage: 20 MG, 3/WEEK
     Route: 048
     Dates: start: 20110712
  5. SULFAMETHOXAZOLE AND TRIMETHOPRIM [Concomitant]
     Indication: INFECTION PROPHYLAXIS
     Dosage: 1 DF, UNK
     Route: 048
     Dates: start: 20091014
  6. VALACYCLOVIR HYDROCHLORIDE [Concomitant]
     Indication: INFECTION PROPHYLAXIS
     Dosage: 500 MG, UNK
     Route: 048
     Dates: start: 20100104
  7. ZOLEDRONIC ACID [Concomitant]
     Dosage: 4 MG, MONTHLY
     Route: 042
     Dates: start: 20100805
  8. BROTIZOLAM [Concomitant]
     Indication: INSOMNIA
     Dosage: 0.25 MG, PRN
     Route: 048
     Dates: start: 20110713
  9. KETOPROFEN [Concomitant]
     Indication: MUSCULOSKELETAL PAIN
     Dosage: UNK
     Route: 061
     Dates: start: 20110726
  10. OMEPRAZOLE [Concomitant]
     Indication: PROPHYLAXIS
     Dosage: 20 MG, UNK
     Route: 048
     Dates: start: 20091014
  11. FOSFOMYCIN SODIUM [Concomitant]
     Indication: ENTERITIS INFECTIOUS
     Dosage: 1500 MG, TID
     Route: 048
     Dates: start: 20110807
  12. METOCLOPRAMIDE [Concomitant]
     Indication: HICCUPS
     Dosage: 5 MG, PRN
     Route: 048
     Dates: start: 20110713

REACTIONS (6)
  - NAUSEA [None]
  - ABDOMINAL PAIN [None]
  - VOLVULUS [None]
  - DIARRHOEA [None]
  - THROMBOCYTOPENIA [None]
  - ILEUS [None]
